FAERS Safety Report 20079703 (Version 1)
Quarter: 2021Q4

REPORT INFORMATION
  Report Type: Spontaneous
  Country: US (occurrence: US)
  Receive Date: 20211117
  Receipt Date: 20211117
  Transmission Date: 20220304
  Serious: No
  Sender: FDA-Public Use
  Company Number: US-ALVOGEN-2020-ALVOGEN-115203

PATIENT
  Age: 77 Year
  Sex: Female
  Weight: 61.23 kg

DRUGS (3)
  1. LISINOPRIL [Suspect]
     Active Substance: LISINOPRIL
     Indication: Hypertension
  2. LOSARTAN [Suspect]
     Active Substance: LOSARTAN
     Indication: Hypertension
     Dosage: 12.5 MG, 2X/DAY
     Route: 048
  3. VITAMINS NOS [Concomitant]
     Active Substance: VITAMINS
     Indication: Product used for unknown indication

REACTIONS (6)
  - Neurological symptom [Unknown]
  - Arthralgia [Unknown]
  - Drug hypersensitivity [Unknown]
  - Illness [Unknown]
  - Dizziness [Unknown]
  - Unevaluable event [Unknown]
